FAERS Safety Report 12371300 (Version 1)
Quarter: 2016Q2

REPORT INFORMATION
  Report Type: Report from Study
  Country: DK (occurrence: DK)
  Receive Date: 20160516
  Receipt Date: 20160516
  Transmission Date: 20160815
  Serious: Yes (Hospitalization, Other)
  Sender: FDA-Public Use
  Company Number: PHHO2015DK016264

PATIENT
  Age: 45 Year
  Sex: Male

DRUGS (2)
  1. DABRAFENIB [Suspect]
     Active Substance: DABRAFENIB
     Indication: MALIGNANT MELANOMA
     Dosage: 150 MG, BID
     Route: 048
  2. TRAMETINIB [Suspect]
     Active Substance: TRAMETINIB
     Indication: MALIGNANT MELANOMA
     Dosage: 2 MG, QD
     Route: 048

REACTIONS (7)
  - Metastases to peritoneum [Unknown]
  - Lymphadenopathy [Unknown]
  - Pleural disorder [Unknown]
  - Nausea [Unknown]
  - Ascites [Recovered/Resolved]
  - Metastases to liver [Unknown]
  - Vomiting [Unknown]

NARRATIVE: CASE EVENT DATE: 20150716
